FAERS Safety Report 16861754 (Version 5)
Quarter: 2021Q3

REPORT INFORMATION
  Report Type: Report from Study
  Country: US (occurrence: US)
  Receive Date: 20190927
  Receipt Date: 20210730
  Transmission Date: 20211014
  Serious: Yes (Other)
  Sender: FDA-Public Use
  Company Number: US-ACADIA PHARMACEUTICALS INC.-ACA-2019-014143

PATIENT
  Age: 77 Year
  Sex: Male

DRUGS (10)
  1. ASPIRIN. [Concomitant]
     Active Substance: ASPIRIN
     Indication: PRODUCT USED FOR UNKNOWN INDICATION
  2. SINEMET [Concomitant]
     Active Substance: CARBIDOPA\LEVODOPA
     Indication: PRODUCT USED FOR UNKNOWN INDICATION
  3. TRIAMTERENE AND HYDROCHLOROTHIAZIDE [Concomitant]
     Active Substance: HYDROCHLOROTHIAZIDE\TRIAMTERENE
     Indication: PRODUCT USED FOR UNKNOWN INDICATION
  4. VITAMIN C [Concomitant]
     Active Substance: ASCORBIC ACID
     Indication: PRODUCT USED FOR UNKNOWN INDICATION
  5. MULTIVITAMINS [Concomitant]
     Active Substance: VITAMINS
     Indication: PRODUCT USED FOR UNKNOWN INDICATION
  6. OMEPRAZOLE. [Concomitant]
     Active Substance: OMEPRAZOLE
     Indication: PRODUCT USED FOR UNKNOWN INDICATION
  7. AMANTADINE. [Concomitant]
     Active Substance: AMANTADINE HYDROCHLORIDE
     Indication: PRODUCT USED FOR UNKNOWN INDICATION
  8. NUPLAZID [Suspect]
     Active Substance: PIMAVANSERIN TARTRATE
     Indication: PARKINSON^S DISEASE
     Dosage: 34 MILLIGRAM, QD
     Route: 048
  9. CARBIDOPA. [Concomitant]
     Active Substance: CARBIDOPA
     Indication: PRODUCT USED FOR UNKNOWN INDICATION
  10. TAMSULOSIN [Concomitant]
     Active Substance: TAMSULOSIN
     Indication: PRODUCT USED FOR UNKNOWN INDICATION

REACTIONS (7)
  - Hallucination [Not Recovered/Not Resolved]
  - Basal cell carcinoma [Not Recovered/Not Resolved]
  - Skin neoplasm excision [Not Recovered/Not Resolved]
  - Pain [Not Recovered/Not Resolved]
  - Hallucination, visual [Not Recovered/Not Resolved]
  - Sarcoma [Recovered/Resolved]
  - Hallucination, visual [Not Recovered/Not Resolved]

NARRATIVE: CASE EVENT DATE: 20210210
